FAERS Safety Report 6534470-X (Version None)
Quarter: 2009Q4

REPORT INFORMATION
  Report Type: 
  Country: None (occurrence: None)
  Receive Date: 20091228
  Receipt Date: 20091030
  Transmission Date: 20100525
  Serious: Yes (Hospitalization)
  Sender: FDA-Public Use
  Company Number: US-003667

PATIENT
  Age: 39 Year
  Sex: Female

DRUGS (2)
  1. MULTIHANCE [Suspect]
     Indication: LIVER FUNCTION TEST ABNORMAL
     Dosage: 20ML ONCE INTRAVENOUS (NOT OTHERWISE SPECIFIED)
     Route: 042
     Dates: start: 20091028, end: 20091028
  2. MULTIHANCE [Suspect]
     Indication: NUCLEAR MAGNETIC RESONANCE IMAGING
     Dosage: 20ML ONCE INTRAVENOUS (NOT OTHERWISE SPECIFIED)
     Route: 042
     Dates: start: 20091028, end: 20091028

REACTIONS (1)
  - ANAPHYLACTOID REACTION [None]
